FAERS Safety Report 7347440-9 (Version None)
Quarter: 2011Q1

REPORT INFORMATION
  Report Type: 
  Country: None (occurrence: None)
  Receive Date: 20110311
  Receipt Date: 20110228
  Transmission Date: 20110831
  Serious: Yes (Hospitalization)
  Sender: FDA-Public Use
  Company Number: PHHY2010US85459

PATIENT
  Sex: Female
  Weight: 62 kg

DRUGS (9)
  1. VALTREX [Concomitant]
     Dosage: 500 MG, UNK
  2. EXJADE [Suspect]
     Indication: IRON OVERLOAD
     Dosage: 500 MG, BID
     Route: 048
     Dates: start: 20101124
  3. METHOTREXATE [Concomitant]
  4. DIFLUCAN [Concomitant]
     Dosage: 200 MG, UNK
  5. TYLENOL [Concomitant]
     Dosage: 600 MG, UNK
  6. EXJADE [Suspect]
     Dosage: 250 MG, BID
     Route: 048
  7. NEXIUM [Concomitant]
     Dosage: 40 MG, UNK
  8. CYTARABINE [Suspect]
     Dosage: UNK
     Route: 042
     Dates: start: 20101116
  9. CYTARABINE [Suspect]
     Indication: CHRONIC MYELOID LEUKAEMIA
     Dosage: UNK
     Route: 042
     Dates: start: 20101116

REACTIONS (7)
  - PLATELET COUNT DECREASED [None]
  - DIARRHOEA [None]
  - HAEMOGLOBIN DECREASED [None]
  - BACK PAIN [None]
  - FEBRILE NEUTROPENIA [None]
  - DEVICE RELATED INFECTION [None]
  - INCORRECT DOSE ADMINISTERED [None]
